FAERS Safety Report 26171896 (Version 2)
Quarter: 2025Q4

REPORT INFORMATION
  Report Type: Report from Study
  Country: BR (occurrence: BR)
  Receive Date: 20251217
  Receipt Date: 20251225
  Transmission Date: 20260118
  Serious: Yes (Other)
  Sender: NOVARTIS
  Company Number: BR-002147023-NVSC2025BR182657

PATIENT
  Age: 48 Year
  Sex: Female
  Weight: 105 kg

DRUGS (6)
  1. COSENTYX [Suspect]
     Active Substance: SECUKINUMAB
     Indication: Psoriatic arthropathy
     Dosage: 300 MG, QMO (2 PENS OF 150) (STARTED IN JUN OR JUL)
     Route: 058
     Dates: start: 2025
  2. COSENTYX [Suspect]
     Active Substance: SECUKINUMAB
     Dosage: UNK
     Route: 065
     Dates: start: 20251117
  3. COSENTYX [Suspect]
     Active Substance: SECUKINUMAB
     Dosage: UNK
     Route: 065
     Dates: start: 20251118
  4. LOSARTAN POTASSIUM [Concomitant]
     Active Substance: LOSARTAN POTASSIUM
     Indication: Hypertension
     Dosage: 1 DOSAGE FORM (TABLET), QD (STARTED ABOUT 30 YEARS AGO)
     Route: 048
  5. GLIFAGE [Concomitant]
     Active Substance: METFORMIN HYDROCHLORIDE
     Indication: Diabetes mellitus
     Dosage: 1 DOSAGE FORM (TABLET), QD (STARTED ABOUT 30 YEARS AGO)
     Route: 048
  6. HYDROCHLOROTHIAZIDE [Concomitant]
     Active Substance: HYDROCHLOROTHIAZIDE
     Indication: Hypertension
     Dosage: 1 DOSAGE FORM (TABLET), QD (STARTED ABOUT 30 YEARS AGO)
     Route: 048

REACTIONS (15)
  - Urticaria [Recovering/Resolving]
  - Skin mass [Recovering/Resolving]
  - Pruritus [Recovering/Resolving]
  - Decreased immune responsiveness [Recovering/Resolving]
  - Skin hypertrophy [Recovering/Resolving]
  - Wound [Recovering/Resolving]
  - Dyshidrotic eczema [Recovering/Resolving]
  - Feeling of despair [Recovering/Resolving]
  - Insomnia [Recovering/Resolving]
  - Injection site discolouration [Recovering/Resolving]
  - Haematoma [Recovering/Resolving]
  - Skin exfoliation [Recovering/Resolving]
  - Tonsillitis [Recovered/Resolved]
  - Hypersensitivity [Recovered/Resolved]
  - Skin discolouration [Recovered/Resolved]

NARRATIVE: CASE EVENT DATE: 20251001
